FAERS Safety Report 24815798 (Version 1)
Quarter: 2025Q1

REPORT INFORMATION
  Report Type: Spontaneous
  Country: US (occurrence: None)
  Receive Date: 20250107
  Receipt Date: 20250107
  Transmission Date: 20250409
  Serious: Yes (unspecified)
  Sender: FDA-CTU
  Company Number: None

PATIENT
  Age: 33 Year
  Sex: Female
  Weight: 101.6 kg

DRUGS (1)
  1. MAGNESIUM [Suspect]
     Active Substance: MAGNESIUM

REACTIONS (2)
  - Vomiting [None]
  - Feeling hot [None]

NARRATIVE: CASE EVENT DATE: 20241106
